FAERS Safety Report 25136553 (Version 1)
Quarter: 2025Q1

REPORT INFORMATION
  Report Type: Spontaneous
  Country: BR (occurrence: BR)
  Receive Date: 20250328
  Receipt Date: 20250328
  Transmission Date: 20250409
  Serious: Yes (Hospitalization)
  Sender: NOVO NORDISK
  Company Number: BR-NOVOPROD-1396046

PATIENT
  Age: 15 Year
  Sex: Female

DRUGS (1)
  1. RYBELSUS [Suspect]
     Active Substance: SEMAGLUTIDE
     Indication: Obesity

REACTIONS (6)
  - Disorientation [Unknown]
  - Hallucination, auditory [Unknown]
  - Mental disorder [Unknown]
  - Abdominal pain [Unknown]
  - Diarrhoea [Unknown]
  - Off label use [Recovered/Resolved]
